FAERS Safety Report 22248185 (Version 1)
Quarter: 2023Q2

REPORT INFORMATION
  Report Type: Spontaneous
  Country: CN (occurrence: CN)
  Receive Date: 20230425
  Receipt Date: 20230425
  Transmission Date: 20230721
  Serious: Yes (Other)
  Sender: FDA-Public Use
  Company Number: CN-BoehringerIngelheim-2023-BI-231649

PATIENT
  Age: 60 Year
  Sex: Male
  Weight: 88 kg

DRUGS (1)
  1. ALTEPLASE [Suspect]
     Active Substance: ALTEPLASE
     Indication: Thrombolysis
     Route: 042
     Dates: start: 20230320, end: 20230320

REACTIONS (4)
  - Cerebral haemorrhage [Recovering/Resolving]
  - Headache [Recovering/Resolving]
  - Insomnia [Recovering/Resolving]
  - Abnormal dreams [Recovering/Resolving]

NARRATIVE: CASE EVENT DATE: 20230321
